FAERS Safety Report 19125211 (Version 3)
Quarter: 2022Q2

REPORT INFORMATION
  Report Type: Spontaneous
  Country: US (occurrence: US)
  Receive Date: 20210412
  Receipt Date: 20220527
  Transmission Date: 20220721
  Serious: No
  Sender: FDA-Public Use
  Company Number: US-PFIZER INC-2021351053

PATIENT
  Age: 56 Year
  Sex: Male

DRUGS (2)
  1. XELJANZ [Suspect]
     Active Substance: TOFACITINIB CITRATE
     Dosage: 5 MG
     Dates: start: 20210302, end: 202204
  2. COVID-19 VACCINE [Concomitant]
     Dosage: DOSE NUMBER UNKNOWN, SINGLE

REACTIONS (5)
  - Therapeutic product effect delayed [Unknown]
  - Dyspepsia [Unknown]
  - Headache [Unknown]
  - Fatigue [Unknown]
  - Therapy change [Unknown]

NARRATIVE: CASE EVENT DATE: 20210301
